APPROVED DRUG PRODUCT: RISPERIDONE
Active Ingredient: RISPERIDONE
Strength: 1MG/ML
Dosage Form/Route: SOLUTION;ORAL
Application: A202386 | Product #001 | TE Code: AA
Applicant: CHARTWELL MOLECULAR HOLDINGS LLC
Approved: Jan 12, 2015 | RLD: No | RS: No | Type: RX